FAERS Safety Report 9899455 (Version 1)
Quarter: 2014Q1

REPORT INFORMATION
  Report Type: Spontaneous
  Country: US (occurrence: US)
  Receive Date: 20140214
  Receipt Date: 20140214
  Transmission Date: 20141002
  Serious: Yes (Hospitalization, Other)
  Sender: FDA-Public Use
  Company Number: US-TEVA-462413USA

PATIENT
  Age: 61 Year
  Sex: Male

DRUGS (2)
  1. METHYLPREDNISOLONE [Suspect]
     Indication: IDIOPATHIC PULMONARY FIBROSIS
     Route: 065
  2. PREDNISONE [Suspect]
     Dosage: TAPERING OVER 5D
     Route: 065

REACTIONS (1)
  - Mania [Recovering/Resolving]
